FAERS Safety Report 4478443-X (Version None)
Quarter: 2004Q4

REPORT INFORMATION
  Report Type: 
  Country: None (occurrence: None)
  Receive Date: 20041018
  Receipt Date: 20041018
  Transmission Date: 20050328
  Serious: Yes (Hospitalization)
  Sender: FDA-Public Use
  Company Number: None

PATIENT
  Age: 81 Year
  Sex: Male
  Weight: 63.2 kg

DRUGS (11)
  1. GLYBURIDE [Suspect]
     Indication: DIABETES MELLITUS
     Dosage: 5 MG  QD  ORAL
     Route: 048
  2. ACETAMINOPHEN [Concomitant]
  3. ASPIRIN [Concomitant]
  4. CARVEDILOL [Concomitant]
  5. DIGOXIN [Concomitant]
  6. FINASTERIDE [Concomitant]
  7. FUROSEMIDE [Concomitant]
  8. LISINOPRIL [Concomitant]
  9. METOLAZONE [Concomitant]
  10. SERTRALINE HCL [Concomitant]
  11. TERAZOSIN HCL [Concomitant]

REACTIONS (4)
  - DECREASED APPETITE [None]
  - HYPOGLYCAEMIA [None]
  - LOSS OF CONSCIOUSNESS [None]
  - MARKEDLY REDUCED DIETARY INTAKE [None]
